FAERS Safety Report 9396219 (Version 2)
Quarter: 2014Q2

REPORT INFORMATION
  Report Type: Spontaneous
  Country: US (occurrence: US)
  Receive Date: 20130711
  Receipt Date: 20140617
  Transmission Date: 20141212
  Serious: Yes (Hospitalization)
  Sender: FDA-Public Use
  Company Number: US-009507513-1307USA005115

PATIENT
  Sex: Female

DRUGS (1)
  1. NUVARING [Suspect]
     Indication: CONTRACEPTION
     Dosage: UNK
     Route: 067
     Dates: start: 200612, end: 20070217

REACTIONS (3)
  - Deep vein thrombosis [Not Recovered/Not Resolved]
  - Peripheral sensory neuropathy [Unknown]
  - Thyroid disorder [Unknown]
